FAERS Safety Report 11451600 (Version 2)
Quarter: 2015Q3

REPORT INFORMATION
  Report Type: Spontaneous
  Country: RU (occurrence: RU)
  Receive Date: 20150903
  Receipt Date: 20150921
  Transmission Date: 20151125
  Serious: Yes (Hospitalization, Other)
  Sender: FDA-Public Use
  Company Number: RU-009507513-1508RUS011814

PATIENT
  Age: 50 Year
  Sex: Female

DRUGS (3)
  1. METHYLPREDNISOLONE. [Suspect]
     Active Substance: METHYLPREDNISOLONE
     Dosage: 12 MG/24 HOURS
     Route: 048
  2. METHYLPREDNISOLONE. [Suspect]
     Active Substance: METHYLPREDNISOLONE
     Dosage: 6 MG/24 HOURS
     Route: 048
  3. DIPROSPAN [Suspect]
     Active Substance: BETAMETHASONE DIPROPIONATE\BETAMETHASONE SODIUM PHOSPHATE
     Dosage: 1 ML, EVERY TWO MONTHS
     Route: 030
     Dates: start: 2008

REACTIONS (13)
  - Rash pruritic [Unknown]
  - Ecchymosis [Unknown]
  - Leukocytosis [Unknown]
  - Asthenia [Unknown]
  - Joint stiffness [Unknown]
  - Dizziness [Unknown]
  - Erythema nodosum [Unknown]
  - Skin hyperpigmentation [Unknown]
  - Joint swelling [Unknown]
  - Deafness [Unknown]
  - Muckle-Wells syndrome [Unknown]
  - Body temperature increased [Unknown]
  - Arthralgia [Unknown]

NARRATIVE: CASE EVENT DATE: 201403
